FAERS Safety Report 25346312 (Version 1)
Quarter: 2025Q2

REPORT INFORMATION
  Report Type: Other
  Country: CA (occurrence: CA)
  Receive Date: 20250522
  Receipt Date: 20250522
  Transmission Date: 20250716
  Serious: Yes (Hospitalization, Other)
  Sender: ALVOGEN
  Company Number: CA-ALVOGEN-2025098016

PATIENT
  Age: 50 Year
  Sex: Male

DRUGS (3)
  1. DEXAMETHASONE [Suspect]
     Active Substance: DEXAMETHASONE
     Indication: Evidence based treatment
  2. Immunoglobulin [Concomitant]
     Indication: Evidence based treatment
     Route: 042
  3. ISONIAZID [Concomitant]
     Active Substance: ISONIAZID
     Indication: Evidence based treatment

REACTIONS (1)
  - Upper gastrointestinal haemorrhage [Unknown]
